FAERS Safety Report 15210671 (Version 1)
Quarter: 2018Q4

REPORT INFORMATION
  Report Type: Spontaneous
  Country: FR (occurrence: FR)
  Receive Date: 20180728
  Receipt Date: 20180728
  Transmission Date: 20190204
  Serious: Yes (Life-Threatening)
  Sender: FDA-Public Use
  Company Number: FR-TEVA-2018-FR-931147

PATIENT
  Age: 36 Year
  Sex: Male
  Weight: 90 kg

DRUGS (4)
  1. AMLODIPINE ARROW GENERIQUES [Suspect]
     Active Substance: AMLODIPINE BESYLATE
     Indication: HYPERTENSION
     Route: 048
     Dates: start: 20180522, end: 20180522
  2. PROPRANOLOL EG [Interacting]
     Active Substance: PROPRANOLOL HYDROCHLORIDE
     Indication: HYPERTENSION
     Route: 048
     Dates: start: 20180521, end: 20180521
  3. URAPIDIL MYLAN [Interacting]
     Active Substance: URAPIDIL
     Indication: HYPERTENSION
     Route: 041
     Dates: start: 20180519, end: 20180523
  4. NICARDIPINE ARROW [Interacting]
     Active Substance: NICARDIPINE
     Indication: HYPERTENSION
     Route: 041
     Dates: start: 20180518, end: 20180522

REACTIONS (3)
  - Cardiac arrest [Recovered/Resolved]
  - Drug interaction [Recovered/Resolved]
  - Bradycardia [Recovered/Resolved]

NARRATIVE: CASE EVENT DATE: 20180522
